FAERS Safety Report 18217519 (Version 1)
Quarter: 2020Q3

REPORT INFORMATION
  Report Type: Spontaneous
  Country: DE (occurrence: DE)
  Receive Date: 20200901
  Receipt Date: 20200901
  Transmission Date: 20201103
  Serious: No
  Sender: FDA-Public Use
  Company Number: DE-GW PHARMA-202007DEGW02404

PATIENT

DRUGS (2)
  1. EPIDIOLEX [Suspect]
     Active Substance: CANNABIDIOL
     Indication: EPILEPSY
     Dosage: 40 MILLIGRAM, BID (0.4 ML?0?0.4 ML)
     Route: 048
  2. EPIDIOLEX [Suspect]
     Active Substance: CANNABIDIOL
     Indication: DYSPLASIA

REACTIONS (2)
  - Euphoric mood [Recovered/Resolved]
  - Product use in unapproved indication [Not Recovered/Not Resolved]
